FAERS Safety Report 8838105 (Version 2)
Quarter: 2012Q4

REPORT INFORMATION
  Report Type: Report from Study
  Country: NL (occurrence: NL)
  Receive Date: 20121012
  Receipt Date: 20121030
  Transmission Date: 20130627
  Serious: Yes (Hospitalization)
  Sender: FDA-Public Use
  Company Number: NL-ROCHE-1142285

PATIENT
  Age: 71 Year
  Sex: Female

DRUGS (5)
  1. CAPECITABINE [Suspect]
     Indication: GASTRIC CANCER
     Dosage: Cumultaive dose: 1500 mg
     Route: 048
     Dates: start: 20120921, end: 20120921
  2. EPIRUBICIN [Suspect]
     Indication: GASTRIC CANCER
     Dosage: Cumultaive dose: 80 mg
     Route: 042
     Dates: start: 20120921, end: 20120921
  3. CISPLATIN [Suspect]
     Indication: GASTRIC CANCER
     Dosage: Cumultaive dose: 100 mg
     Route: 042
     Dates: start: 20120921, end: 20120921
  4. GLIMEPIRIDE [Concomitant]
  5. NOVORAPID [Concomitant]
     Dosage: 24 IE
     Route: 065

REACTIONS (1)
  - Peripheral ischaemia [Recovering/Resolving]
